FAERS Safety Report 8251631-2 (Version None)
Quarter: 2012Q2

REPORT INFORMATION
  Report Type: 
  Country: None (occurrence: None)
  Receive Date: 20120402
  Receipt Date: 20111201
  Transmission Date: 20120825
  Serious: No
  Sender: FDA-Public Use
  Company Number: US-ABBOTT-11P-163-0886682-00

PATIENT
  Age: 57 Year
  Sex: Male

DRUGS (1)
  1. ANDROGEL [Suspect]
     Indication: PRODUCT USED FOR UNKNOWN INDICATION
     Dosage: 3 PUMPS PER DAY - 23 DAY USAGE PER MONTH
     Route: 061

REACTIONS (3)
  - DRUG EFFECT DELAYED [None]
  - THERAPY CESSATION [None]
  - PRODUCT SIZE ISSUE [None]
